FAERS Safety Report 13055904 (Version 1)
Quarter: 2016Q4

REPORT INFORMATION
  Report Type: Spontaneous
  Country: FR (occurrence: FR)
  Receive Date: 20161222
  Receipt Date: 20161222
  Transmission Date: 20170207
  Serious: Yes (Hospitalization)
  Sender: FDA-Public Use
  Company Number: FR-PFIZER INC-2016585830

PATIENT
  Age: 67 Year
  Sex: Female

DRUGS (5)
  1. DOLIPRANE [Concomitant]
     Active Substance: ACETAMINOPHEN
  2. LEVOTHYROX [Concomitant]
     Active Substance: LEVOTHYROXINE
  3. TRAMADOL HCL [Concomitant]
     Active Substance: TRAMADOL HYDROCHLORIDE
  4. ADVIL [Suspect]
     Active Substance: IBUPROFEN
     Indication: DYSPHAGIA
     Dosage: 400 MG, 3X/DAY
     Route: 048
     Dates: start: 20161117, end: 20161120
  5. AMOXICILLIN. [Concomitant]
     Active Substance: AMOXICILLIN

REACTIONS (2)
  - Cellulitis [Recovered/Resolved]
  - Product use issue [Recovered/Resolved]

NARRATIVE: CASE EVENT DATE: 20161117
